FAERS Safety Report 24526644 (Version 1)
Quarter: 2024Q4

REPORT INFORMATION
  Report Type: Spontaneous
  Country: US (occurrence: US)
  Receive Date: 20241021
  Receipt Date: 20241021
  Transmission Date: 20250114
  Serious: No
  Sender: ROCHE
  Company Number: US-ROCHE-3429052

PATIENT
  Sex: Male

DRUGS (3)
  1. ZELBORAF [Suspect]
     Active Substance: VEMURAFENIB
     Indication: Metabolic disorder
     Dosage: TAKE 1 TABLET BY MOUTH EVERY OTHER DAY. MAY BE TAKEN WITH OR WITHOUT A MEAL; ONGOING: YES
     Route: 048
     Dates: start: 20170602
  2. ALLOPURINOL [Concomitant]
     Active Substance: ALLOPURINOL
  3. ASPIRIN [Concomitant]
     Active Substance: ASPIRIN

REACTIONS (2)
  - Off label use [Unknown]
  - No adverse event [Unknown]
